FAERS Safety Report 6658679-X (Version None)
Quarter: 2010Q1

REPORT INFORMATION
  Report Type: 
  Country: None (occurrence: None)
  Receive Date: 20100330
  Receipt Date: 20100318
  Transmission Date: 20100710
  Serious: Yes (Other)
  Sender: FDA-Public Use
  Company Number: PHHY2010MX16921

PATIENT
  Sex: Male
  Weight: 36 kg

DRUGS (1)
  1. EXJADE [Suspect]
     Indication: SICKLE CELL ANAEMIA
     Dosage: 28
     Route: 048
     Dates: start: 20070604

REACTIONS (4)
  - GROWTH RETARDATION [None]
  - JAUNDICE [None]
  - PALLOR [None]
  - SPLEEN DISORDER [None]
